FAERS Safety Report 13890785 (Version 1)
Quarter: 2017Q3

REPORT INFORMATION
  Report Type: Spontaneous
  Country: CH (occurrence: CH)
  Receive Date: 20170822
  Receipt Date: 20170822
  Transmission Date: 20171127
  Serious: Yes (Other)
  Sender: FDA-Public Use
  Company Number: CH-LINDE GAS NORTH AMERICA LLC, LINDE GAS PUERTO RICO INC.-CH-LHC-2017182

PATIENT
  Age: 72 Year
  Sex: Male
  Weight: 50 kg

DRUGS (1)
  1. OXYGEN (GENERIC) [Suspect]
     Active Substance: OXYGEN
     Indication: EMPHYSEMA

REACTIONS (1)
  - Hypercapnia [Recovered/Resolved]
